FAERS Safety Report 22702310 (Version 3)
Quarter: 2023Q4

REPORT INFORMATION
  Report Type: Other
  Country: GR (occurrence: GR)
  Receive Date: 20230713
  Receipt Date: 20231125
  Transmission Date: 20240110
  Serious: Yes (Death, Hospitalization)
  Sender: FDA-Public Use
  Company Number: GR-Merck Healthcare KGaA-2023460961

PATIENT
  Age: 45 Year
  Sex: Female

DRUGS (2)
  1. MAVENCLAD [Suspect]
     Active Substance: CLADRIBINE
     Indication: Relapsing multiple sclerosis
     Dosage: FIRST YEAR FIRST WEEK THERAPY.
     Dates: start: 20230327, end: 20230331
  2. MAVENCLAD [Suspect]
     Active Substance: CLADRIBINE
     Dosage: FIRST YEAR SECOND WEEK THERAPY.
     Dates: start: 20230424, end: 20230428

REACTIONS (8)
  - Hepatitis cholestatic [Fatal]
  - Acute hepatic failure [Fatal]
  - Hepatic encephalopathy [Fatal]
  - Hepatorenal syndrome [Fatal]
  - Acute respiratory failure [Fatal]
  - Multiple organ dysfunction syndrome [Fatal]
  - Cardiac arrest [Fatal]
  - Overweight [Unknown]
